FAERS Safety Report 10166714 (Version 1)
Quarter: 2014Q2

REPORT INFORMATION
  Report Type: Spontaneous
  Country: US (occurrence: None)
  Receive Date: 20140509
  Receipt Date: 20140509
  Transmission Date: 20141212
  Serious: Yes (Life-Threatening, Hospitalization)
  Sender: FDA-Public Use
  Company Number: None

PATIENT
  Age: 61 Year
  Sex: Male

DRUGS (2)
  1. RIBAVIRIN [Suspect]
     Indication: CHRONIC HEPATITIS
     Dosage: 3 TABLETS, BID, ORAL
     Route: 048
     Dates: start: 20131017, end: 20140221
  2. PEGASYS [Concomitant]

REACTIONS (5)
  - Thrombosis [None]
  - Pulmonary embolism [None]
  - Muscular weakness [None]
  - Dyspnoea [None]
  - Fatigue [None]
